FAERS Safety Report 18456287 (Version 1)
Quarter: 2020Q4

REPORT INFORMATION
  Report Type: Spontaneous
  Country: CA (occurrence: CA)
  Receive Date: 20201103
  Receipt Date: 20201103
  Transmission Date: 20210114
  Serious: Yes (Hospitalization, Other)
  Sender: FDA-Public Use
  Company Number: CA-AUROBINDO-AUR-APL-2019-085985

PATIENT
  Age: 68 Year
  Sex: Male

DRUGS (8)
  1. CARBIDOPA. [Suspect]
     Active Substance: CARBIDOPA
     Indication: PROPHYLAXIS
     Dosage: 25 MILLIGRAM
     Route: 065
  2. PHENYTOIN. [Suspect]
     Active Substance: PHENYTOIN
     Indication: TONIC CONVULSION
     Dosage: 75 MILLIGRAM, ONCE A DAY (IN MORNING)
     Route: 065
  3. PHENYTOIN. [Suspect]
     Active Substance: PHENYTOIN
     Dosage: 125 MILLIGRAM, ONCE A DAY(EVENING)
     Route: 065
  4. LEVETIRACETAM. [Suspect]
     Active Substance: LEVETIRACETAM
     Indication: TONIC CONVULSION
     Dosage: 1500 MILLIGRAM, TWO TIMES A DAY
     Route: 065
  5. OXITRIPTAN [Suspect]
     Active Substance: OXITRIPTAN
     Indication: TONIC CONVULSION
     Dosage: 400 MILLIGRAM, 3 TIMES A DAY
     Route: 065
  6. CARBIDOPA. [Suspect]
     Active Substance: CARBIDOPA
     Indication: GASTROINTESTINAL DISORDER
  7. CLONAZEPAM. [Concomitant]
     Active Substance: CLONAZEPAM
     Indication: PRODUCT USED FOR UNKNOWN INDICATION
     Dosage: 1 MILLIGRAM, TWO TIMES A DAY
     Route: 065
  8. VALPROIC ACID. [Suspect]
     Active Substance: VALPROIC ACID
     Indication: TONIC CONVULSION
     Dosage: 650 MILLIGRAM, FOUR TIMES/DAY
     Route: 065

REACTIONS (3)
  - Myoclonus [Recovering/Resolving]
  - Serotonin syndrome [Unknown]
  - Somnolence [Recovering/Resolving]

NARRATIVE: CASE EVENT DATE: 20120130
